FAERS Safety Report 10099326 (Version 1)
Quarter: 2014Q2

REPORT INFORMATION
  Report Type: Spontaneous
  Country: JP (occurrence: JP)
  Receive Date: 20140423
  Receipt Date: 20140423
  Transmission Date: 20141212
  Serious: Yes (Other)
  Sender: FDA-Public Use
  Company Number: JP-OTSUKA-JP-2014-13227

PATIENT
  Sex: 0

DRUGS (3)
  1. PLETAAL [Suspect]
     Indication: PRODUCT USED FOR UNKNOWN INDICATION
     Dosage: UNK
     Route: 048
  2. SARPOGRELATE HYDROCHLORIDE [Concomitant]
     Dosage: UNK
     Route: 048
  3. ASPIRIN [Concomitant]
     Dosage: UNK
     Route: 065

REACTIONS (1)
  - Tumour haemorrhage [Unknown]
